FAERS Safety Report 7719796-6 (Version None)
Quarter: 2011Q3

REPORT INFORMATION
  Report Type: 
  Country: None (occurrence: None)
  Receive Date: 20110831
  Receipt Date: 20110822
  Transmission Date: 20111222
  Serious: No
  Sender: FDA-Public Use
  Company Number: US-BIOGENIDEC-2010BI036044

PATIENT
  Age: 66 Year
  Sex: Female

DRUGS (1)
  1. TYSABRI [Suspect]
     Indication: MULTIPLE SCLEROSIS
     Route: 042
     Dates: start: 20080107, end: 20110705

REACTIONS (10)
  - MUSCLE STRAIN [None]
  - CATARACT OPERATION [None]
  - FATIGUE [None]
  - VAGINAL HAEMORRHAGE [None]
  - MOBILITY DECREASED [None]
  - CYSTITIS [None]
  - DRUG INEFFECTIVE [None]
  - NASOPHARYNGITIS [None]
  - ASTHENOPIA [None]
  - HYPOTENSION [None]
